FAERS Safety Report 17273564 (Version 3)
Quarter: 2020Q1

REPORT INFORMATION
  Report Type: Spontaneous
  Country: FR (occurrence: FR)
  Receive Date: 20200115
  Receipt Date: 20200121
  Transmission Date: 20200409
  Serious: Yes (Hospitalization)
  Sender: FDA-Public Use
  Company Number: FR-PFIZER INC-2020016247

PATIENT
  Age: 64 Year
  Sex: Female
  Weight: 80 kg

DRUGS (11)
  1. BIPROFENID [Suspect]
     Active Substance: KETOPROFEN
     Indication: SURGERY
     Dosage: 200 MG, 1X/DAY
     Route: 048
     Dates: start: 20191129, end: 20191203
  2. EXACYL [Suspect]
     Active Substance: TRANEXAMIC ACID
     Indication: PROPHYLAXIS
     Dosage: 2.5 G, UNK
     Route: 042
     Dates: start: 20191129, end: 20191129
  3. EUPANTOL [Suspect]
     Active Substance: PANTOPRAZOLE SODIUM
     Indication: PROPHYLAXIS
     Dosage: 40 MG, 1X/DAY
     Route: 048
     Dates: start: 20191129, end: 20191203
  4. MIDAZOLAM HYDROCHLORIDE. [Suspect]
     Active Substance: MIDAZOLAM HYDROCHLORIDE
     Indication: ANAESTHESIA
     Dosage: 2 MG, UNK
     Route: 042
     Dates: start: 20191129, end: 20191129
  5. MORPHINE HYDROCHLORIDE [Suspect]
     Active Substance: MORPHINE HYDROCHLORIDE
     Indication: PROCEDURAL PAIN
     Dosage: UNK
     Route: 065
     Dates: start: 20191129, end: 20191129
  6. SEVOFLURANE. [Suspect]
     Active Substance: SEVOFLURANE
     Indication: ANAESTHESIA
     Dosage: UNK
     Route: 055
     Dates: start: 20191129, end: 20191129
  7. DALACINE [Suspect]
     Active Substance: CLINDAMYCIN
     Indication: ANTIBIOTIC PROPHYLAXIS
     Dosage: 900 MG, UNK
     Route: 042
     Dates: start: 20191129, end: 20191129
  8. BUPIVACAINE [BUPIVACAINE HYDROCHLORIDE] [Suspect]
     Active Substance: BUPIVACAINE HYDROCHLORIDE
     Indication: ANAESTHESIA
     Dosage: UNK
     Route: 014
     Dates: start: 20191129, end: 20191129
  9. PROPOFOL. [Suspect]
     Active Substance: PROPOFOL
     Dosage: 300 MG, UNK
     Route: 042
     Dates: start: 20191129, end: 20191129
  10. GLICLAZIDE [Concomitant]
     Active Substance: GLICLAZIDE
     Dosage: 60 MILLIGRAM, QD
     Route: 048
  11. GALVUS [Suspect]
     Active Substance: VILDAGLIPTIN
     Dosage: 50 MG, 1X/DAY
     Route: 048
     Dates: start: 20191129, end: 20191202

REACTIONS (1)
  - Acute generalised exanthematous pustulosis [Recovered/Resolved]

NARRATIVE: CASE EVENT DATE: 20191202
